FAERS Safety Report 6625204-9 (Version None)
Quarter: 2010Q1

REPORT INFORMATION
  Report Type: 
  Country: None (occurrence: None)
  Receive Date: 20100310
  Receipt Date: 20090910
  Transmission Date: 20100710
  Serious: No
  Sender: FDA-Public Use
  Company Number: US-BIOGENIDEC-2009BI028780

PATIENT
  Sex: Female

DRUGS (4)
  1. AVONEX [Suspect]
     Indication: MULTIPLE SCLEROSIS
     Route: 030
     Dates: start: 19960901
  2. AVONEX [Suspect]
     Route: 030
  3. TYLENOL-500 [Concomitant]
     Indication: PREMEDICATION
  4. IBUPROFEN [Concomitant]
     Indication: PREMEDICATION

REACTIONS (2)
  - HEMIPARESIS [None]
  - INFLUENZA LIKE ILLNESS [None]
